FAERS Safety Report 6931667-1 (Version None)
Quarter: 2010Q3

REPORT INFORMATION
  Report Type: 
  Country: None (occurrence: None)
  Receive Date: 20100812
  Receipt Date: 20100721
  Transmission Date: 20110219
  Serious: No
  Sender: FDA-Public Use
  Company Number: 2010-00530

PATIENT
  Age: 66 Year
  Sex: Female
  Weight: 81.6475 kg

DRUGS (16)
  1. ZICAM COLD REMEDY NASAL GEL [Suspect]
     Dosage: 1 DOSE, 1 DOSE
     Dates: start: 20100717, end: 20100717
  2. AMITRIPTYLINE HCL [Concomitant]
  3. SIMVASTATIN [Concomitant]
  4. SINGULAIR [Concomitant]
  5. PREDNISONE [Concomitant]
  6. AMLODIPINE [Concomitant]
  7. TRIAMTERENE [Concomitant]
  8. CYMBALTA [Concomitant]
  9. NEURONTIN [Concomitant]
  10. OXYCODONE HCL AND ACETAMINOPHEN [Concomitant]
  11. OXYCONTIN [Concomitant]
  12. CARPIDOPA/LEVODOPA [Concomitant]
  13. MIRAPEX [Concomitant]
  14. DHEA [Concomitant]
  15. CEFUROXIME [Concomitant]
  16. HYDROCHLOROQUINE [Concomitant]

REACTIONS (5)
  - AGEUSIA [None]
  - ANOSMIA [None]
  - LACRIMATION INCREASED [None]
  - NASAL DISCOMFORT [None]
  - RHINALGIA [None]
